FAERS Safety Report 16363442 (Version 1)
Quarter: 2019Q2

REPORT INFORMATION
  Report Type: Spontaneous
  Country: FR (occurrence: FR)
  Receive Date: 20190528
  Receipt Date: 20190528
  Transmission Date: 20190711
  Serious: Yes (Other)
  Sender: FDA-Public Use
  Company Number: FR-WHANIN PHARM. CO., LTD.-2019M1050629

PATIENT
  Age: 33 Year
  Sex: Male

DRUGS (7)
  1. CLOZAPINE MYLAN 25 MG, TABLETTEN [Suspect]
     Active Substance: CLOZAPINE
     Indication: SCHIZOPHRENIA
     Dosage: UNK
     Dates: start: 2018
  2. CLOZAPINE MYLAN 25 MG, TABLETTEN [Suspect]
     Active Substance: CLOZAPINE
     Dosage: 25 MILLIGRAM, AM
     Dates: start: 20190411
  3. CLOZAPINE MYLAN 100 MG, TABLETTEN [Suspect]
     Active Substance: CLOZAPINE
     Dosage: 200 MILLIGRAM, AM
     Dates: start: 20190411
  4. CLOZAPINE MYLAN 100 MG, TABLETTEN [Suspect]
     Active Substance: CLOZAPINE
     Indication: SCHIZOPHRENIA
     Dosage: UNK
     Dates: start: 2018
  5. CLOZAPINE MYLAN 100 MG, TABLETTEN [Suspect]
     Active Substance: CLOZAPINE
     Dosage: UNK
     Dates: start: 201901
  6. CLOZAPINE MYLAN 100 MG, TABLETTEN [Suspect]
     Active Substance: CLOZAPINE
     Dosage: 300 MILLIGRAM, PM (100MG THREE IN EVENING)
     Dates: start: 20190411
  7. CLOZAPINE MYLAN 25 MG, TABLETTEN [Suspect]
     Active Substance: CLOZAPINE
     Dosage: 25 MILLIGRAM, PM
     Dates: start: 20190411

REACTIONS (2)
  - Drug ineffective [Unknown]
  - Antipsychotic drug level decreased [Unknown]

NARRATIVE: CASE EVENT DATE: 201903
